FAERS Safety Report 15284961 (Version 1)
Quarter: 2018Q4

REPORT INFORMATION
  Report Type: Spontaneous
  Country: US (occurrence: US)
  Receive Date: 20180816
  Receipt Date: 20180816
  Transmission Date: 20190204
  Serious: Yes (Other)
  Sender: FDA-Public Use
  Company Number: US-IPSEN BIOPHARMACEUTICALS, INC.-2018-11782

PATIENT
  Age: 9 Year
  Sex: Male

DRUGS (2)
  1. RECOMBINANT HUMAN INSULIN-LIKE GROWTH FACTOR-1 [Suspect]
     Active Substance: MECASERMIN
     Indication: OFF LABEL USE
     Route: 065
  2. RECOMBINANT HUMAN INSULIN-LIKE GROWTH FACTOR-1 [Suspect]
     Active Substance: MECASERMIN
     Indication: BODY HEIGHT BELOW NORMAL
     Route: 065

REACTIONS (9)
  - Obesity [Unknown]
  - Gastrooesophageal reflux disease [Unknown]
  - Drug ineffective for unapproved indication [Unknown]
  - Sleep apnoea syndrome [Unknown]
  - Tonsillar hypertrophy [Unknown]
  - Increased appetite [Unknown]
  - Weight increased [Unknown]
  - Acanthosis nigricans [Unknown]
  - Product supply issue [Unknown]
